FAERS Safety Report 4708310-5 (Version None)
Quarter: 2005Q3

REPORT INFORMATION
  Report Type: 
  Country: None (occurrence: None)
  Receive Date: 20050707
  Receipt Date: 20050524
  Transmission Date: 20060218
  Serious: Yes (Hospitalization)
  Sender: FDA-Public Use
  Company Number: ES-MERCK-0505ESP00039

PATIENT
  Age: 55 Year
  Sex: Male
  Weight: 75 kg

DRUGS (7)
  1. VIOXX [Suspect]
     Indication: CHRONIC SINUSITIS
     Route: 048
     Dates: start: 20010723, end: 20010823
  2. CLARITHROMYCIN [Concomitant]
     Indication: CHRONIC SINUSITIS
     Route: 048
     Dates: start: 20010723, end: 20010730
  3. DICLOFENAC SODIUM [Suspect]
     Indication: CHRONIC SINUSITIS
     Route: 048
     Dates: start: 20010623, end: 20010823
  4. ERYTHROMYCIN [Suspect]
     Indication: CHRONIC SINUSITIS
     Route: 048
     Dates: start: 20010723, end: 20010823
  5. MOXIFLOXACIN HYDROCHLORIDE [Suspect]
     Indication: CHRONIC SINUSITIS
     Route: 048
     Dates: start: 20010723, end: 20010823
  6. AZITHROMYCIN [Concomitant]
     Indication: CHRONIC SINUSITIS
     Route: 048
     Dates: start: 20010723, end: 20010726
  7. CARBAMAZEPINE [Suspect]
     Route: 065
     Dates: start: 20020101

REACTIONS (3)
  - HEPATITIS [None]
  - HEPATOCELLULAR DAMAGE [None]
  - JAUNDICE [None]
